FAERS Safety Report 6330248 (Version 1)
Quarter: 2020Q3

REPORT INFORMATION
  Report Type: Report from Study
  Country: US (occurrence: US)
  Receive Date: 20070611
  Receipt Date: 20070611
  Transmission Date: 20201104
  Serious: Yes (Death, Other)
  Sender: FDA-Public Use
  Company Number: US-JNJFOC-20051102414

PATIENT
  Age: 75 Year
  Sex: Female
  Weight: 61 kg

DRUGS (16)
  1. INFLIXIMAB [Suspect]
     Active Substance: INFLIXIMAB
     Indication: CHRONIC OBSTRUCTIVE PULMONARY DISEASE
     Route: 042
  2. PLACEBO [Suspect]
     Active Substance: UNSPECIFIED INGREDIENT
     Indication: CHRONIC OBSTRUCTIVE PULMONARY DISEASE
  3. PLACEBO [Suspect]
     Active Substance: UNSPECIFIED INGREDIENT
     Indication: CHRONIC OBSTRUCTIVE PULMONARY DISEASE
  4. DURAGESIC [Concomitant]
     Active Substance: FENTANYL
     Indication: PELVIC PAIN
  5. INFLIXIMAB [Suspect]
     Active Substance: INFLIXIMAB
     Indication: CHRONIC OBSTRUCTIVE PULMONARY DISEASE
     Route: 042
  6. INFLIXIMAB [Suspect]
     Active Substance: INFLIXIMAB
     Indication: CHRONIC OBSTRUCTIVE PULMONARY DISEASE
     Route: 042
  7. PLACEBO [Suspect]
     Active Substance: UNSPECIFIED INGREDIENT
     Indication: CHRONIC OBSTRUCTIVE PULMONARY DISEASE
  8. PERCOCET [Concomitant]
     Active Substance: ACETAMINOPHEN\OXYCODONE HYDROCHLORIDE
     Indication: BACK PAIN
  9. INFLIXIMAB [Suspect]
     Active Substance: INFLIXIMAB
     Indication: CHRONIC OBSTRUCTIVE PULMONARY DISEASE
     Route: 042
  10. PLACEBO [Suspect]
     Active Substance: UNSPECIFIED INGREDIENT
     Indication: CHRONIC OBSTRUCTIVE PULMONARY DISEASE
  11. PLACEBO [Suspect]
     Active Substance: UNSPECIFIED INGREDIENT
     Indication: CHRONIC OBSTRUCTIVE PULMONARY DISEASE
  12. INFLIXIMAB [Suspect]
     Active Substance: INFLIXIMAB
     Indication: CHRONIC OBSTRUCTIVE PULMONARY DISEASE
     Route: 042
  13. INFLIXIMAB [Suspect]
     Active Substance: INFLIXIMAB
     Indication: CHRONIC OBSTRUCTIVE PULMONARY DISEASE
     Route: 042
  14. PERCOCET [Concomitant]
     Active Substance: ACETAMINOPHEN\OXYCODONE HYDROCHLORIDE
     Indication: PELVIC PAIN
  15. DURAGESIC [Concomitant]
     Active Substance: FENTANYL
     Indication: BACK PAIN
  16. PLACEBO [Suspect]
     Active Substance: UNSPECIFIED INGREDIENT
     Indication: CHRONIC OBSTRUCTIVE PULMONARY DISEASE

REACTIONS (8)
  - Death [Fatal]
  - Lymphadenopathy mediastinal [None]
  - Cervix carcinoma stage III [None]
  - Anaemia [None]
  - Cervix carcinoma [Unknown]
  - Wrong product administered [None]
  - Aortic arteriosclerosis [None]
  - Metastasis [None]

NARRATIVE: CASE EVENT DATE: 20050701
